FAERS Safety Report 7961304-9 (Version None)
Quarter: 2011Q4

REPORT INFORMATION
  Report Type: 
  Country: None (occurrence: None)
  Receive Date: 20111202
  Receipt Date: 20111123
  Transmission Date: 20120403
  Serious: Yes (Death, Life-Threatening, Hospitalization)
  Sender: FDA-Public Use
  Company Number: IMP_05404_2011

PATIENT
  Sex: Male
  Weight: 67.8581 kg

DRUGS (2)
  1. RYTHMOL [Suspect]
     Indication: UNEVALUABLE EVENT
     Dosage: (425 MG QD, (SINGLE DOSE) ORAL)
     Route: 048
     Dates: start: 20110611
  2. PROPAFENONE HYDROCHLORIDE [Suspect]
     Indication: UNEVALUABLE EVENT
     Dosage: (425 MG QD, (SINGLE DOSE) ORAL)
     Route: 048
     Dates: start: 20110625

REACTIONS (4)
  - COMA [None]
  - INJURY [None]
  - NEAR DROWNING [None]
  - HYPOXIC-ISCHAEMIC ENCEPHALOPATHY [None]
